FAERS Safety Report 16104128 (Version 1)
Quarter: 2019Q1

REPORT INFORMATION
  Report Type: Spontaneous
  Country: GB (occurrence: GB)
  Receive Date: 20190322
  Receipt Date: 20190322
  Transmission Date: 20190418
  Serious: Yes (Other)
  Sender: FDA-Public Use
  Company Number: GB-ACCORD-114479

PATIENT
  Age: 37 Year
  Sex: Female
  Weight: 92.9 kg

DRUGS (2)
  1. CLOZAPINE. [Suspect]
     Active Substance: CLOZAPINE
     Indication: SCHIZOPHRENIA
     Route: 048
     Dates: start: 20031015, end: 20181128
  2. TEICOPLANIN [Interacting]
     Active Substance: TEICOPLANIN
     Indication: OSTEOMYELITIS
     Route: 040
     Dates: start: 20181101, end: 20181126

REACTIONS (3)
  - Drug interaction [Unknown]
  - Drug monitoring procedure incorrectly performed [Unknown]
  - Neutropenia [Not Recovered/Not Resolved]

NARRATIVE: CASE EVENT DATE: 20181126
